FAERS Safety Report 25993276 (Version 1)
Quarter: 2025Q4

REPORT INFORMATION
  Report Type: Spontaneous
  Country: US (occurrence: US)
  Receive Date: 20251104
  Receipt Date: 20251104
  Transmission Date: 20260118
  Serious: No
  Sender: ROCHE
  Company Number: US-ROCHE-10000419895

PATIENT
  Sex: Female

DRUGS (2)
  1. XOLAIR [Suspect]
     Active Substance: OMALIZUMAB
     Indication: Dermatitis atopic
     Route: 058
     Dates: start: 20251020
  2. COSENTYX [Concomitant]
     Active Substance: SECUKINUMAB

REACTIONS (8)
  - Throat tightness [Unknown]
  - Speech disorder [Unknown]
  - Feeling hot [Unknown]
  - Dyspnoea [Unknown]
  - Swelling face [Unknown]
  - Lip swelling [Unknown]
  - Swollen tongue [Unknown]
  - Dysphagia [Unknown]
